FAERS Safety Report 10162216 (Version 2)
Quarter: 2014Q2

REPORT INFORMATION
  Report Type: Spontaneous
  Country: DE (occurrence: DE)
  Receive Date: 20140509
  Receipt Date: 20140509
  Transmission Date: 20141212
  Serious: Yes (Other)
  Sender: FDA-Public Use
  Company Number: DE-SA-2014SA036873

PATIENT
  Age: 44 Year
  Sex: Female

DRUGS (1)
  1. CHLOROQUINE (SALT NOT SPECIFIED) [Suspect]
     Indication: RHEUMATOID ARTHRITIS
     Route: 065

REACTIONS (11)
  - Maculopathy [Not Recovered/Not Resolved]
  - Retinal injury [Not Recovered/Not Resolved]
  - Retinal pigment epitheliopathy [Not Recovered/Not Resolved]
  - Visual field defect [Not Recovered/Not Resolved]
  - Visual field defect [Not Recovered/Not Resolved]
  - Photophobia [Not Recovered/Not Resolved]
  - Photopsia [Not Recovered/Not Resolved]
  - Visual acuity reduced [Not Recovered/Not Resolved]
  - Retinogram abnormal [Not Recovered/Not Resolved]
  - Night blindness [Not Recovered/Not Resolved]
  - Accident [Unknown]
